FAERS Safety Report 21683063 (Version 1)
Quarter: 2022Q4

REPORT INFORMATION
  Report Type: Spontaneous
  Country: US (occurrence: None)
  Receive Date: 20221203
  Receipt Date: 20221203
  Transmission Date: 20230113
  Serious: Yes (Other)
  Sender: FDA-Public Use
  Company Number: None

PATIENT
  Age: 46 Year
  Sex: Female
  Weight: 85.05 kg

DRUGS (3)
  1. COUGH DM [Suspect]
     Active Substance: DEXTROMETHORPHAN HYDROBROMIDE
     Indication: Cough
     Dosage: OTHER QUANTITY : 10 ML;?FREQUENCY : EVERY 12 HOURS;?
     Route: 048
     Dates: start: 20221124, end: 20221124
  2. NOVOLOG [Concomitant]
  3. TRESIBA [Concomitant]
     Active Substance: INSULIN DEGLUDEC

REACTIONS (9)
  - Head discomfort [None]
  - Gait disturbance [None]
  - Eyelid disorder [None]
  - Jaw disorder [None]
  - Speech disorder [None]
  - Visual impairment [None]
  - Impaired driving ability [None]
  - Balance disorder [None]
  - Hypoaesthesia [None]

NARRATIVE: CASE EVENT DATE: 20221129
